FAERS Safety Report 25429827 (Version 1)
Quarter: 2025Q2

REPORT INFORMATION
  Report Type: Spontaneous
  Country: GB (occurrence: GB)
  Receive Date: 20250612
  Receipt Date: 20250612
  Transmission Date: 20250717
  Serious: Yes (Other)
  Sender: TEVA
  Company Number: GB-MHRA-TPP2949524C5202438YC1748883044033

PATIENT
  Age: 83 Year
  Sex: Female
  Weight: 93 kg

DRUGS (9)
  1. MEMANTINE [Suspect]
     Active Substance: MEMANTINE
     Indication: Ill-defined disorder
     Route: 065
     Dates: start: 20250311
  2. MICONAZOLE [Concomitant]
     Active Substance: MICONAZOLE
     Indication: Ill-defined disorder
     Route: 065
     Dates: start: 20250423, end: 20250430
  3. BISOPROLOL [Concomitant]
     Active Substance: BISOPROLOL
     Indication: Ill-defined disorder
     Dosage: ONE TO BE TAKEN EACH DAY, DAILY DOSE : 1 DOSAGE FORM DAILY
     Route: 065
     Dates: start: 20250311
  4. PROSHIELD PLUS [Concomitant]
     Indication: Ill-defined disorder
     Dosage: APPLY TWICE PER DAY TO AFFECTED AREA THAT ARE R, DAILY DOSE: 2 DOSAGE FORM DAILY
     Route: 065
     Dates: start: 20250311, end: 20250408
  5. CLOPIDOGREL [Concomitant]
     Active Substance: CLOPIDOGREL BISULFATE
     Indication: Ill-defined disorder
     Dosage: ONE TO BE TAKEN EACH DAY, DAILY DOSE : 1 DOSAGE FORM DAILY
     Route: 065
     Dates: start: 20250311
  6. SERTRALINE [Concomitant]
     Active Substance: SERTRALINE HYDROCHLORIDE
     Indication: Ill-defined disorder
     Dosage: ONE TO BE TAKEN EACH DAY, DAILY DOSE : 1 DOSAGE FORM DAILY
     Route: 065
     Dates: start: 20250311
  7. FOLIC ACID [Concomitant]
     Active Substance: FOLIC ACID
     Indication: Ill-defined disorder
     Dosage: ONE TO BE TAKEN EACH DAY, DAILY DOSE : 1 DOSAGE FORM DAILY
     Route: 065
     Dates: start: 20250311
  8. ATORVASTATIN [Concomitant]
     Active Substance: ATORVASTATIN
     Indication: Ill-defined disorder
     Dosage: TAKE ONE AT NIGHT, DAILY DOSE : 1 DOSAGE FORM DAILY
     Route: 065
     Dates: start: 20250311
  9. LANSOPRAZOLE [Concomitant]
     Active Substance: LANSOPRAZOLE
     Indication: Ill-defined disorder
     Dosage: TAKE ONE CAPSULE DAILY, DAILY DOSE : 1 DOSAGE FORM DAILY
     Route: 065
     Dates: start: 20250319

REACTIONS (4)
  - Confusional state [Unknown]
  - Sedation [Unknown]
  - Disorientation [Unknown]
  - Palpitations [Unknown]

NARRATIVE: CASE EVENT DATE: 20250311
